FAERS Safety Report 7704304-6 (Version None)
Quarter: 2011Q3

REPORT INFORMATION
  Report Type: 
  Country: None (occurrence: None)
  Receive Date: 20110823
  Receipt Date: 20110811
  Transmission Date: 20111222
  Serious: Yes (Other)
  Sender: FDA-Public Use
  Company Number: PHHY2010US89786

PATIENT
  Sex: Female

DRUGS (10)
  1. GILENYA [Suspect]
     Indication: MULTIPLE SCLEROSIS
     Dosage: 0.5 MG, QD
     Route: 048
     Dates: start: 20101116
  2. TIZANIDINE HCL [Concomitant]
  3. CLONAZEPAM [Concomitant]
  4. SIMVASTATIN [Concomitant]
  5. GILENYA [Suspect]
     Dosage: 0.5 MG, QD
     Dates: start: 20110105
  6. NUVIGIL [Concomitant]
  7. TRICOR [Concomitant]
  8. VENLAFAXINE [Concomitant]
  9. LYRICA [Concomitant]
  10. CELEBREX [Concomitant]

REACTIONS (3)
  - CONFUSIONAL STATE [None]
  - WHITE BLOOD CELL COUNT DECREASED [None]
  - VERTIGO [None]
